FAERS Safety Report 26161411 (Version 1)
Quarter: 2025Q4

REPORT INFORMATION
  Report Type: Spontaneous
  Country: US (occurrence: US)
  Receive Date: 20251216
  Receipt Date: 20251216
  Transmission Date: 20260117
  Serious: Yes (Hospitalization, Other)
  Sender: AZURITY PHARMACEUTICALS
  Company Number: US-AZURITY PHARMACEUTICALS, INC.-AZR202512-003750

PATIENT
  Age: 47 Year
  Sex: Female

DRUGS (1)
  1. SOTALOL HYDROCHLORIDE [Suspect]
     Active Substance: SOTALOL HYDROCHLORIDE
     Indication: Product used for unknown indication
     Dosage: 3.6 GRAM, UNK
     Route: 048

REACTIONS (4)
  - Cardiogenic shock [Recovered/Resolved]
  - Mental status changes [Recovered/Resolved]
  - Torsade de pointes [Recovered/Resolved]
  - Overdose [Unknown]
